FAERS Safety Report 5847439-5 (Version None)
Quarter: 2008Q3

REPORT INFORMATION
  Report Type: 
  Country: None (occurrence: None)
  Receive Date: 20080813
  Receipt Date: 20080731
  Transmission Date: 20090109
  Serious: Yes (Hospitalization)
  Sender: FDA-Public Use
  Company Number: 100#08#2006-02764

PATIENT
  Age: 76 Year
  Sex: Female

DRUGS (3)
  1. METHOTREXATE [Suspect]
     Indication: RHEUMATOID ARTHRITIS
     Dosage: 7.5 MG WEEKLY, 20 MG SUBCUTANEOUS
     Route: 058
  2. DIPYRONE INJ [Suspect]
     Indication: PAIN MANAGEMENT
  3. CORTICOSTEROIDS (CORTICOSTEROIDS) [Concomitant]

REACTIONS (9)
  - BONE MARROW TOXICITY [None]
  - CANDIDIASIS [None]
  - FALL [None]
  - LOBAR PNEUMONIA [None]
  - MOUTH ULCERATION [None]
  - MYELODYSPLASTIC SYNDROME [None]
  - PHARYNGEAL ULCERATION [None]
  - PYREXIA [None]
  - STAPHYLOCOCCAL SEPSIS [None]
